FAERS Safety Report 7337864-8 (Version None)
Quarter: 2011Q1

REPORT INFORMATION
  Report Type: 
  Country: None (occurrence: None)
  Receive Date: 20110308
  Receipt Date: 20110228
  Transmission Date: 20110831
  Serious: Yes (Congenital Anomaly, Other)
  Sender: FDA-Public Use
  Company Number: JP-ROCHE-761128

PATIENT
  Sex: Female
  Weight: 63 kg

DRUGS (1)
  1. TAMIFLU [Suspect]
     Indication: INFLUENZA
     Dosage: DOSAGE UNCERTAIN.
     Route: 048
     Dates: start: 20110207, end: 20110211

REACTIONS (4)
  - INTRA-UTERINE DEATH [None]
  - BLISTER [None]
  - CHORIOAMNIONITIS [None]
  - DRUG EXPOSURE DURING PREGNANCY [None]
